FAERS Safety Report 9886407 (Version 3)
Quarter: 2014Q2

REPORT INFORMATION
  Report Type: Spontaneous
  Country: BR (occurrence: BR)
  Receive Date: 20140210
  Receipt Date: 20140402
  Transmission Date: 20141212
  Serious: Yes (Hospitalization, Other)
  Sender: FDA-Public Use
  Company Number: BR-PFIZER INC-2014036981

PATIENT
  Age: 10 Decade
  Sex: Female
  Weight: 50 kg

DRUGS (6)
  1. BENICAR [Suspect]
     Indication: HYPERTENSION
     Dosage: 40 MG, 1X/DAY
     Route: 048
     Dates: start: 2011
  2. AMLODIPINE BESILATE [Suspect]
     Indication: HYPERTENSION
     Dosage: 5 MG, DAILY
     Route: 048
     Dates: start: 2011
  3. CILOSTAZOL [Concomitant]
     Dosage: UNK
  4. GLIMEPIRIDE [Concomitant]
     Dosage: UNK
  5. VITAMIN C [Concomitant]
     Dosage: UNK
  6. OLANZAPINE [Concomitant]
     Dosage: UNK

REACTIONS (13)
  - Neoplasm malignant [Not Recovered/Not Resolved]
  - Transient ischaemic attack [Recovered/Resolved]
  - Urinary tract infection [Unknown]
  - Blood pressure decreased [Recovered/Resolved]
  - Asthenia [Unknown]
  - Anxiety [Unknown]
  - Anxiety [Unknown]
  - Cachexia [Not Recovered/Not Resolved]
  - Dysphagia [Recovered/Resolved]
  - Body height decreased [Not Recovered/Not Resolved]
  - Urine odour abnormal [Not Recovered/Not Resolved]
  - Drug administration error [Unknown]
  - Wrong technique in drug usage process [Unknown]
